FAERS Safety Report 13672409 (Version 1)
Quarter: 2017Q2

REPORT INFORMATION
  Report Type: Spontaneous
  Country: GB (occurrence: GB)
  Receive Date: 20170621
  Receipt Date: 20170621
  Transmission Date: 20170830
  Serious: Yes (Hospitalization)
  Sender: FDA-Public Use
  Company Number: GB-SA-2017SA105860

PATIENT
  Sex: Female

DRUGS (5)
  1. ALIROCUMAB PREFILLED PEN [Concomitant]
     Active Substance: ALIROCUMAB
     Dates: start: 20170202
  2. PRALUENT [Suspect]
     Active Substance: ALIROCUMAB
     Route: 058
     Dates: start: 20170202
  3. PRALUENT [Suspect]
     Active Substance: ALIROCUMAB
     Route: 058
     Dates: start: 20170202
  4. PENICILLIN [Suspect]
     Active Substance: PENICILLIN
     Route: 065
  5. ALIROCUMAB PREFILLED PEN [Concomitant]
     Active Substance: ALIROCUMAB
     Dates: start: 20170202

REACTIONS (6)
  - Pruritus generalised [Unknown]
  - Hypersensitivity [Unknown]
  - Contusion [Unknown]
  - Pyrexia [Unknown]
  - Rash [Recovered/Resolved]
  - Kidney infection [Recovered/Resolved]
